FAERS Safety Report 25604286 (Version 2)
Quarter: 2025Q3

REPORT INFORMATION
  Report Type: Spontaneous
  Country: TR (occurrence: TR)
  Receive Date: 20250725
  Receipt Date: 20250821
  Transmission Date: 20251021
  Serious: Yes (Other)
  Sender: ABBVIE
  Company Number: TR-ABBOTT-2025A-1401078

PATIENT
  Age: 50 Year
  Sex: Female

DRUGS (1)
  1. FENOFIBRATE [Suspect]
     Active Substance: FENOFIBRATE
     Indication: Hyperglycaemia
     Dosage: 267 MG HARD CAPSULE (FENOFIBRATE)
     Route: 048

REACTIONS (2)
  - Nephropathy [Recovered/Resolved]
  - Blood creatinine increased [Recovered/Resolved]
